FAERS Safety Report 5157469-7 (Version None)
Quarter: 2006Q4

REPORT INFORMATION
  Report Type: 
  Country: None (occurrence: None)
  Receive Date: 20061127
  Receipt Date: 20040824
  Transmission Date: 20070319
  Serious: Yes (Death)
  Sender: FDA-Public Use
  Company Number: US-GLAXOSMITHKLINE-A0523495A

PATIENT
  Age: 16 Year
  Sex: Male
  Weight: 70.9 kg

DRUGS (3)
  1. PAXIL [Suspect]
     Indication: DRUG USE FOR UNKNOWN INDICATION
     Route: 048
     Dates: start: 20020110, end: 20020913
  2. NIZORAL [Concomitant]
  3. CLODERM [Concomitant]

REACTIONS (13)
  - ABNORMAL BEHAVIOUR [None]
  - AGITATION [None]
  - AKATHISIA [None]
  - ANXIETY [None]
  - COMPLETED SUICIDE [None]
  - DEPERSONALISATION [None]
  - FEELING ABNORMAL [None]
  - FLAT AFFECT [None]
  - INSOMNIA [None]
  - SOCIAL AVOIDANT BEHAVIOUR [None]
  - SUICIDAL IDEATION [None]
  - THINKING ABNORMAL [None]
  - TREMOR [None]
